FAERS Safety Report 25941799 (Version 1)
Quarter: 2025Q4

REPORT INFORMATION
  Report Type: Spontaneous
  Country: US (occurrence: None)
  Receive Date: 20251020
  Receipt Date: 20251020
  Transmission Date: 20260118
  Serious: Yes (Hospitalization)
  Sender: FDA-CTU
  Company Number: None

PATIENT
  Sex: Female

DRUGS (1)
  1. PROLIA [Suspect]
     Active Substance: DENOSUMAB
     Indication: Senile osteoporosis
     Dosage: 60 MG EVERY 6 MONTHS  SUBCUTANEOUS?
     Route: 058
     Dates: start: 20250721

REACTIONS (3)
  - Ankle fracture [None]
  - Infection [None]
  - Arthritis infective [None]
